FAERS Safety Report 14196608 (Version 1)
Quarter: 2017Q4

REPORT INFORMATION
  Report Type: Spontaneous
  Country: US (occurrence: US)
  Receive Date: 20171116
  Receipt Date: 20171116
  Transmission Date: 20180321
  Serious: Yes (Hospitalization)
  Sender: FDA-Public Use
  Company Number: US-BAYER-2017-207138

PATIENT
  Age: 71 Year
  Sex: Male
  Weight: 81.8 kg

DRUGS (2)
  1. ALEVE [Suspect]
     Active Substance: NAPROXEN SODIUM
     Indication: PHYSIOTHERAPY
     Dosage: 200 MG, Q8HR
     Route: 048
     Dates: start: 20170214, end: 20170324
  2. XARELTO [Suspect]
     Active Substance: RIVAROXABAN
     Indication: DEEP VEIN THROMBOSIS
     Dosage: 15 MG, UNK
     Route: 048
     Dates: start: 20170222, end: 20170324

REACTIONS (2)
  - Gastric ulcer haemorrhage [Recovering/Resolving]
  - Oesophageal ulcer haemorrhage [Recovering/Resolving]

NARRATIVE: CASE EVENT DATE: 201702
